FAERS Safety Report 5976830-1 (Version None)
Quarter: 2008Q4

REPORT INFORMATION
  Report Type: 
  Country: None (occurrence: None)
  Receive Date: 20081203
  Receipt Date: 20080214
  Transmission Date: 20090506
  Serious: No
  Sender: FDA-Public Use
  Company Number: US-AMGEN-KDL265489

PATIENT
  Sex: Female

DRUGS (4)
  1. ENBREL [Suspect]
     Indication: RHEUMATOID ARTHRITIS
     Route: 058
     Dates: start: 20070301
  2. BIAXIN [Suspect]
  3. CECLOR [Suspect]
  4. UNSPECIFIED INHALER [Concomitant]

REACTIONS (3)
  - FALL [None]
  - PNEUMONIA [None]
  - RHEUMATOID ARTHRITIS [None]
